FAERS Safety Report 22087053 (Version 1)
Quarter: 2023Q1

REPORT INFORMATION
  Report Type: Spontaneous
  Country: US (occurrence: US)
  Receive Date: 20230313
  Receipt Date: 20230313
  Transmission Date: 20230418
  Serious: No
  Sender: FDA-Public Use
  Company Number: US-JNJFOC-20230305974

PATIENT

DRUGS (1)
  1. TYLENOL [Suspect]
     Active Substance: ACETAMINOPHEN
     Indication: Nasopharyngitis
     Dosage: TOOK MY FIRST DOSE AND WAITED. AFTER 20 MIN MY SINUSES WERE COMPLETELY CLOGGED. I HAD TO USE A SINUS
     Route: 065
     Dates: start: 20230226

REACTIONS (2)
  - Sinus congestion [Not Recovered/Not Resolved]
  - Product use in unapproved indication [Unknown]

NARRATIVE: CASE EVENT DATE: 20230226
